FAERS Safety Report 8021381-6 (Version None)
Quarter: 2012Q1

REPORT INFORMATION
  Report Type: 
  Country: None (occurrence: None)
  Receive Date: 20120104
  Receipt Date: 20111226
  Transmission Date: 20120608
  Serious: Yes (Other)
  Sender: FDA-Public Use
  Company Number: FR-PFIZER INC-2011244366

PATIENT
  Age: 60 Year
  Sex: Male

DRUGS (8)
  1. SPIRIVA [Concomitant]
     Dosage: UNK
     Dates: start: 20110119
  2. PREDNISONE TAB [Suspect]
     Indication: GRAFT VERSUS HOST DISEASE
     Dosage: UNK
     Route: 048
     Dates: start: 20080407, end: 20081030
  3. VALACYCLOVIR HYDROCHLORIDE [Concomitant]
     Dosage: UNK
     Dates: start: 20110117
  4. GLEEVEC [Concomitant]
     Dosage: UNK
     Route: 048
     Dates: start: 20110119
  5. CEFPODOXIME PROXETIL [Concomitant]
     Indication: BRONCHITIS
  6. VFEND [Suspect]
     Indication: BRONCHOPULMONARY ASPERGILLOSIS
     Dosage: 200 MG, 2X/DAY
     Route: 048
     Dates: start: 20110205, end: 20110501
  7. NEORAL [Suspect]
     Indication: GRAFT VERSUS HOST DISEASE
     Dosage: UNK
     Route: 048
     Dates: start: 20080407, end: 20090616
  8. OROCAL [Concomitant]
     Dosage: UNKNOWN

REACTIONS (2)
  - ACTINIC KERATOSIS [None]
  - PHOTOSENSITIVITY REACTION [None]
